FAERS Safety Report 7111016-9 (Version None)
Quarter: 2010Q4

REPORT INFORMATION
  Report Type: 
  Country: None (occurrence: None)
  Receive Date: 20101118
  Receipt Date: 20101112
  Transmission Date: 20110411
  Serious: Yes (Hospitalization)
  Sender: FDA-Public Use
  Company Number: DE-MERCK-1009DEU00036

PATIENT
  Age: 46 Year
  Sex: Male
  Weight: 98 kg

DRUGS (2)
  1. JANUVIA [Suspect]
     Indication: TYPE 2 DIABETES MELLITUS
     Route: 048
     Dates: start: 20100211, end: 20100405
  2. SITAGLIPTIN AND METFORMIN HYDROCHLORIDE [Suspect]
     Indication: TYPE 2 DIABETES MELLITUS
     Route: 048
     Dates: start: 20100406, end: 20100907

REACTIONS (2)
  - MORPHOEA [None]
  - TINEA VERSICOLOUR [None]
